FAERS Safety Report 8200399-4 (Version None)
Quarter: 2012Q1

REPORT INFORMATION
  Report Type: 
  Country: None (occurrence: None)
  Receive Date: 20120312
  Receipt Date: 20120309
  Transmission Date: 20120608
  Serious: Yes (Life-Threatening)
  Sender: FDA-Public Use
  Company Number: DE-PFIZER INC-2012007287

PATIENT
  Age: 47 Year
  Sex: Female

DRUGS (16)
  1. MARCUMAR [Concomitant]
     Dosage: UNK
     Dates: start: 20081201
  2. KALINOR RETARD [Concomitant]
  3. ACETYLCYSTEINE [Concomitant]
  4. BACLOFEN [Suspect]
     Dosage: 25 MG, 2X/DAY
     Route: 048
  5. AMOXICILLIN [Concomitant]
     Dosage: UNK
     Dates: start: 20110308
  6. AMIODARONE HCL [Suspect]
     Indication: TACHYARRHYTHMIA
     Dosage: 200 MG, 1X/DAY
     Route: 048
     Dates: start: 20090301
  7. MAGNESIUM [Concomitant]
  8. DANTROLENE SODIUM [Suspect]
     Indication: MUSCLE SPASTICITY
     Dosage: 50 MG, 4X/DAY
     Dates: start: 20081201
  9. METOCLOPRAMIDE HYDROCHLORIDE [Concomitant]
  10. TRIMIPRAMINE MALEATE [Suspect]
     Indication: DEPRESSION
     Dosage: 25 MG, 1X/DAY
     Route: 048
  11. FUROSEMIDE [Concomitant]
  12. OMEPRAZOLE [Concomitant]
  13. DANTROLENE SODIUM [Suspect]
     Dosage: 25 MG, 3X/DAY
     Route: 048
  14. BACLOFEN [Suspect]
     Indication: MUSCLE SPASTICITY
     Dosage: 25 MG, 2X/DAY
     Dates: start: 20081201
  15. FERROUS SULFATE TAB [Concomitant]
     Dosage: UNK
     Dates: start: 20081201
  16. METAMIZOLE SODIUM [Concomitant]

REACTIONS (3)
  - HYPONATRAEMIA [None]
  - DISTURBANCE IN ATTENTION [None]
  - BRAIN OEDEMA [None]
